FAERS Safety Report 11889891 (Version 1)
Quarter: 2016Q1

REPORT INFORMATION
  Report Type: Spontaneous
  Country: US (occurrence: US)
  Receive Date: 20160105
  Receipt Date: 20160105
  Transmission Date: 20160526
  Serious: No
  Sender: FDA-Public Use
  Company Number: US-PERRIGO-15US003177

PATIENT
  Age: 66 Year
  Sex: Female
  Weight: 54.42 kg

DRUGS (9)
  1. GUAIFENESIN 600 MG 498 [Suspect]
     Active Substance: GUAIFENESIN
     Dosage: 600 MG, SINGLE
     Route: 048
     Dates: start: 20150318, end: 20150318
  2. SIMVASTATIN. [Concomitant]
     Active Substance: SIMVASTATIN
     Indication: BLOOD CHOLESTEROL INCREASED
     Dosage: UNK
     Route: 065
  3. NAC                                /00082801/ [Concomitant]
     Indication: RHINORRHOEA
     Dosage: 600 MG
     Route: 065
     Dates: start: 201307
  4. GUAIFENESIN 600 MG 498 [Suspect]
     Active Substance: GUAIFENESIN
     Dosage: 600 MG, BID
     Route: 048
     Dates: start: 20150316, end: 20150317
  5. CLARITIN [Concomitant]
     Active Substance: LORATADINE
     Indication: HYPERSENSITIVITY
     Dosage: UNK
     Route: 065
  6. SPIRIVA [Concomitant]
     Active Substance: TIOTROPIUM BROMIDE MONOHYDRATE
     Indication: EMPHYSEMA
     Dosage: UNK
     Route: 065
  7. GUAIFENESIN 600 MG 498 [Suspect]
     Active Substance: GUAIFENESIN
     Indication: UPPER RESPIRATORY TRACT CONGESTION
     Dosage: 600 MG, QD
     Route: 048
     Dates: start: 20150314, end: 20150315
  8. SINGULAIR [Concomitant]
     Active Substance: MONTELUKAST SODIUM
     Indication: ASTHMA
     Dosage: UNK
     Route: 065
  9. ADVAIR HFA [Concomitant]
     Active Substance: FLUTICASONE PROPIONATE\SALMETEROL XINAFOATE
     Indication: EMPHYSEMA
     Dosage: UNK
     Route: 065

REACTIONS (1)
  - Pruritus generalised [Recovered/Resolved]

NARRATIVE: CASE EVENT DATE: 20150315
